FAERS Safety Report 9737167 (Version 2)
Quarter: 2014Q1

REPORT INFORMATION
  Report Type: Spontaneous
  Country: AU (occurrence: AU)
  Receive Date: 20131206
  Receipt Date: 20140117
  Transmission Date: 20141002
  Serious: Yes (Life-Threatening, Hospitalization)
  Sender: FDA-Public Use
  Company Number: AU-BAYER-2013-146191

PATIENT
  Age: 73 Year
  Sex: Male
  Weight: 80 kg

DRUGS (9)
  1. SOTALOL [Suspect]
     Indication: ATRIAL FLUTTER
     Dosage: 40 MG, BID
  2. SOTALOL [Suspect]
     Indication: ATRIAL FLUTTER
     Dosage: 80 MG, ONCE
  3. GLICLAZIDE [Concomitant]
     Indication: TYPE 2 DIABETES MELLITUS
     Dosage: UNK
  4. METFORMIN [Concomitant]
     Indication: TYPE 2 DIABETES MELLITUS
     Dosage: UNK
  5. WARFARIN [Concomitant]
     Indication: ATRIAL FLUTTER
     Dosage: UNK
  6. GLUCAGON [Concomitant]
     Dosage: 2MG
  7. ADRENALINE [Concomitant]
     Dosage: 5 MCG /MIN
     Route: 042
  8. NORADRENALINE [Concomitant]
     Route: 042
  9. CALCIUM CHLORIDE [Concomitant]

REACTIONS (1)
  - Cardiogenic shock [Recovered/Resolved]
